FAERS Safety Report 5750064-8 (Version None)
Quarter: 2008Q2

REPORT INFORMATION
  Report Type: 
  Country: None (occurrence: None)
  Receive Date: 20080527
  Receipt Date: 20080516
  Transmission Date: 20081010
  Serious: Yes (Death)
  Sender: FDA-Public Use
  Company Number: US-PFIZER INC-2008043091

PATIENT
  Age: 86 Year
  Sex: Female
  Weight: 48.1 kg

DRUGS (2)
  1. CELEBREX [Suspect]
     Indication: ARTHRITIS
     Dates: start: 20020101, end: 20020101
  2. ANTIHYPERTENSIVES [Concomitant]
     Indication: HYPERTENSION

REACTIONS (1)
  - DEATH [None]
